FAERS Safety Report 9059386 (Version 1)
Quarter: 2013Q1

REPORT INFORMATION
  Report Type: Spontaneous
  Country: US (occurrence: US)
  Receive Date: 20130211
  Receipt Date: 20130211
  Transmission Date: 20140127
  Serious: Yes (Other)
  Sender: FDA-Public Use
  Company Number: US-GLAXOSMITHKLINE-A1010784A

PATIENT
  Age: 49 Year
  Sex: Female

DRUGS (3)
  1. LAMICTAL XR [Suspect]
     Indication: PARTIAL SEIZURES
     Dosage: 300MG TWICE PER DAY
     Route: 048
     Dates: start: 2010
  2. TOPAMAX [Suspect]
     Indication: PRODUCT USED FOR UNKNOWN INDICATION
  3. VIMPAT [Concomitant]
     Indication: CONVULSION
     Dates: start: 201110

REACTIONS (5)
  - Convulsion [Unknown]
  - Cognitive disorder [Unknown]
  - Insomnia [Not Recovered/Not Resolved]
  - Anxiety [Unknown]
  - Heat exhaustion [Unknown]
